FAERS Safety Report 8120170-1 (Version None)
Quarter: 2012Q1

REPORT INFORMATION
  Report Type: 
  Country: None (occurrence: None)
  Receive Date: 20120207
  Receipt Date: 20120127
  Transmission Date: 20120608
  Serious: Yes (Hospitalization, Disabling)
  Sender: FDA-Public Use
  Company Number: NL-GENZYME-CLOF-1002017

PATIENT
  Sex: Female
  Weight: 58.8 kg

DRUGS (3)
  1. METHOTREXATE [Suspect]
     Indication: ACUTE LYMPHOCYTIC LEUKAEMIA
     Dosage: 15 MG, QW
     Route: 048
     Dates: start: 20120112, end: 20120112
  2. MERCAPTOPURINE [Suspect]
     Indication: ACUTE LYMPHOCYTIC LEUKAEMIA
     Dosage: 50 MG, QD
     Route: 048
     Dates: start: 20120112, end: 20120112
  3. EVOLTRA [Suspect]
     Indication: ACUTE LYMPHOCYTIC LEUKAEMIA
     Dosage: 33 MG, UNK
     Route: 042
     Dates: start: 20100511, end: 20100724

REACTIONS (2)
  - POST TRANSPLANT LYMPHOPROLIFERATIVE DISORDER [None]
  - PYREXIA [None]
